FAERS Safety Report 10258122 (Version 1)
Quarter: 2014Q2

REPORT INFORMATION
  Report Type: Spontaneous
  Country: IT (occurrence: IT)
  Receive Date: 20140625
  Receipt Date: 20140625
  Transmission Date: 20141212
  Serious: Yes (Hospitalization)
  Sender: FDA-Public Use
  Company Number: PHHY2014IT073646

PATIENT
  Sex: Female

DRUGS (7)
  1. METFORMIN [Suspect]
     Indication: DIABETES MELLITUS
     Dosage: 1500 MG, QD
     Route: 048
     Dates: start: 20060101, end: 20140529
  2. NOVONORM [Suspect]
     Indication: DIABETES MELLITUS
     Dosage: 3 MG, QD
     Route: 048
     Dates: start: 20110101, end: 20140528
  3. ENAPREN [Concomitant]
  4. LEXOTAN [Concomitant]
     Dosage: 30 DRP, UNK
     Route: 048
  5. CARDIOASPIRIN [Concomitant]
     Dosage: 100 MG, UNK
     Route: 048
  6. SEROQUEL [Concomitant]
     Route: 048
  7. FLUVOXAMINE [Concomitant]
     Route: 048

REACTIONS (3)
  - Bradykinesia [Recovered/Resolved]
  - Bradyphrenia [Recovered/Resolved]
  - Hypoglycaemia [Recovered/Resolved]
